FAERS Safety Report 11241591 (Version 1)
Quarter: 2015Q3

REPORT INFORMATION
  Report Type: Report from Study
  Country: US (occurrence: US)
  Receive Date: 20150706
  Receipt Date: 20150706
  Transmission Date: 20151125
  Serious: Yes (Hospitalization, Other)
  Sender: FDA-Public Use
  Company Number: US-ASTRAZENECA-2015SE42041

PATIENT
  Age: 23764 Day
  Sex: Female

DRUGS (1)
  1. LYNPARZA [Suspect]
     Active Substance: OLAPARIB
     Indication: OVARIAN CANCER
     Route: 048

REACTIONS (7)
  - Hypersensitivity [Recovered/Resolved]
  - Urticaria [Unknown]
  - Vision blurred [Unknown]
  - Chest pain [Unknown]
  - Generalised erythema [Unknown]
  - Rash generalised [Unknown]
  - Dyspnoea [Unknown]

NARRATIVE: CASE EVENT DATE: 20150420
